FAERS Safety Report 8434405-9 (Version None)
Quarter: 2012Q2

REPORT INFORMATION
  Report Type: 
  Country: None (occurrence: None)
  Receive Date: 20120613
  Receipt Date: 20120604
  Transmission Date: 20120825
  Serious: Yes (Other)
  Sender: FDA-Public Use
  Company Number: US-AMGEN-USASP2012034963

PATIENT
  Age: 67 Year
  Sex: Female

DRUGS (2)
  1. ENBREL [Suspect]
     Indication: RHEUMATOID ARTHRITIS
     Dosage: 50 MG, QWK
     Dates: start: 20000701
  2. FELDENE [Concomitant]
     Dosage: UNK

REACTIONS (5)
  - ERYTHEMA [None]
  - THROAT TIGHTNESS [None]
  - TENSION [None]
  - LIP SWELLING [None]
  - PRURITUS [None]
